FAERS Safety Report 5176461-X (Version None)
Quarter: 2006Q4

REPORT INFORMATION
  Report Type: 
  Country: None (occurrence: None)
  Receive Date: 20061215
  Receipt Date: 20061204
  Transmission Date: 20070319
  Serious: Yes (Other)
  Sender: FDA-Public Use
  Company Number: PHFR2006GB03562

PATIENT
  Age: 69 Year
  Sex: Male
  Weight: 73 kg

DRUGS (1)
  1. DICLOFENAC SODIUM [Suspect]
     Dosage: 50MG/DAY
     Route: 048
     Dates: start: 20061013, end: 20061016

REACTIONS (2)
  - ABDOMINAL PAIN [None]
  - MOUTH ULCERATION [None]
